FAERS Safety Report 24228301 (Version 2)
Quarter: 2024Q3

REPORT INFORMATION
  Report Type: Spontaneous
  Country: JP (occurrence: JP)
  Receive Date: 20240820
  Receipt Date: 20240917
  Transmission Date: 20241016
  Serious: Yes (Other)
  Sender: ACCORD
  Company Number: JP-Accord-441352

PATIENT
  Age: 75 Year
  Sex: Female
  Weight: 49.8 kg

DRUGS (19)
  1. GEMCITABINE [Suspect]
     Active Substance: GEMCITABINE
     Indication: Diffuse large B-cell lymphoma stage IV
     Dosage: C1D1 - C2D15
     Route: 042
     Dates: start: 20220712, end: 20220823
  2. OXALIPLATIN [Suspect]
     Active Substance: OXALIPLATIN
     Indication: Diffuse large B-cell lymphoma stage IV
     Dosage: C1D1 - C2D15
     Route: 042
     Dates: start: 20220712, end: 20220823
  3. EPCORITAMAB [Concomitant]
     Active Substance: EPCORITAMAB
     Indication: Diffuse large B-cell lymphoma stage IV
     Dosage: C1D1
     Route: 058
     Dates: start: 20220712, end: 20220712
  4. VONOPRAZAN [Concomitant]
     Active Substance: VONOPRAZAN
     Dates: start: 20220712
  5. LORAZEPAM [Concomitant]
     Active Substance: LORAZEPAM
     Dates: start: 20210317
  6. SULFAMETHOXAZOLE\TRIMETHOPRIM [Concomitant]
     Active Substance: SULFAMETHOXAZOLE\TRIMETHOPRIM
     Dates: start: 20221013
  7. VALGANCICLOVIR HYDROCHLORIDE [Concomitant]
     Active Substance: VALGANCICLOVIR HYDROCHLORIDE
     Dates: start: 20230824
  8. HEPARINOID [Concomitant]
     Dates: start: 20231114
  9. CARBOCYSTEINE [Concomitant]
     Active Substance: CARBOCYSTEINE
     Dates: start: 20231206
  10. CODEINE PHOSPHATE [Concomitant]
     Active Substance: CODEINE PHOSPHATE
     Dates: start: 20231221
  11. GEMCITABINE [Suspect]
     Active Substance: GEMCITABINE
     Indication: Diffuse large B-cell lymphoma stage IV
     Dosage: C3D1 - C3D15
     Route: 042
     Dates: start: 20220906, end: 20220921
  12. OXALIPLATIN [Suspect]
     Active Substance: OXALIPLATIN
     Indication: Diffuse large B-cell lymphoma stage IV
     Dosage: C3D1 - C3D15
     Route: 042
     Dates: start: 20220906, end: 20220921
  13. EPCORITAMAB [Concomitant]
     Active Substance: EPCORITAMAB
     Indication: Diffuse large B-cell lymphoma stage IV
     Dosage: C1D8
     Route: 058
     Dates: start: 20220719, end: 20220719
  14. EPCORITAMAB [Concomitant]
     Active Substance: EPCORITAMAB
     Indication: Diffuse large B-cell lymphoma stage IV
     Dosage: C1D15 - C1D22
     Route: 058
     Dates: start: 20220726, end: 20220802
  15. EPCORITAMAB [Concomitant]
     Active Substance: EPCORITAMAB
     Indication: Diffuse large B-cell lymphoma stage IV
     Dosage: C2D1 - C9D15
     Route: 058
     Dates: start: 20220809, end: 20230413
  16. EPCORITAMAB [Concomitant]
     Active Substance: EPCORITAMAB
     Indication: Diffuse large B-cell lymphoma stage IV
     Dosage: RP1D1
     Route: 058
     Dates: start: 20230615, end: 20230615
  17. EPCORITAMAB [Concomitant]
     Active Substance: EPCORITAMAB
     Indication: Diffuse large B-cell lymphoma stage IV
     Dosage: RP1D8
     Route: 058
     Dates: start: 20230622, end: 20230622
  18. EPCORITAMAB [Concomitant]
     Active Substance: EPCORITAMAB
     Indication: Diffuse large B-cell lymphoma stage IV
     Dosage: RP1D15 - RP1D22
     Route: 058
     Dates: start: 20230629, end: 20230713
  19. EPCORITAMAB [Concomitant]
     Active Substance: EPCORITAMAB
     Indication: Diffuse large B-cell lymphoma stage IV
     Dosage: C10D1
     Route: 058
     Dates: start: 20230721, end: 20230721

REACTIONS (1)
  - Myelodysplastic syndrome [Not Recovered/Not Resolved]

NARRATIVE: CASE EVENT DATE: 20240724
